FAERS Safety Report 8445513-0 (Version None)
Quarter: 2012Q2

REPORT INFORMATION
  Report Type: 
  Country: None (occurrence: None)
  Receive Date: 20120618
  Receipt Date: 20120607
  Transmission Date: 20120825
  Serious: Yes (Hospitalization)
  Sender: FDA-Public Use
  Company Number: CA-MERCK-1206USA01248

PATIENT
  Age: 79 Year
  Sex: Male

DRUGS (4)
  1. AMLODIPINE [Concomitant]
     Route: 065
  2. ATORVASTATIN CALCIUM [Concomitant]
     Route: 065
  3. ZETIA [Suspect]
     Route: 048
  4. ASPIRIN [Concomitant]
     Route: 065

REACTIONS (4)
  - WEIGHT DECREASED [None]
  - PANCREATITIS [None]
  - CHOLELITHIASIS [None]
  - LIPIDS INCREASED [None]
